FAERS Safety Report 25231955 (Version 1)
Quarter: 2025Q2

REPORT INFORMATION
  Report Type: Spontaneous
  Country: TR (occurrence: TR)
  Receive Date: 20250423
  Receipt Date: 20250423
  Transmission Date: 20250716
  Serious: Yes (Other)
  Sender: Alora Pharma
  Company Number: TR-ACELLA PHARMACEUTICALS, LLC-2025ALO02154

PATIENT
  Age: 9 Year
  Sex: Male

DRUGS (2)
  1. DOXYCYCLINE [Suspect]
     Active Substance: DOXYCYCLINE
     Indication: Brucellosis
  2. RIFAMPIN [Concomitant]
     Active Substance: RIFAMPIN
     Indication: Brucellosis

REACTIONS (1)
  - Lupus-like syndrome [Recovering/Resolving]
